FAERS Safety Report 7639790-3 (Version None)
Quarter: 2011Q3

REPORT INFORMATION
  Report Type: 
  Country: None (occurrence: None)
  Receive Date: 20110727
  Receipt Date: 20110715
  Transmission Date: 20111222
  Serious: Yes (Other)
  Sender: FDA-Public Use
  Company Number: PHHY2011JP64720

PATIENT
  Sex: Male
  Weight: 55 kg

DRUGS (1)
  1. FAMVIR [Suspect]
     Indication: HERPES ZOSTER
     Dosage: 500 MG, TID
     Route: 048
     Dates: start: 20110701, end: 20110703

REACTIONS (4)
  - OEDEMA PERIPHERAL [None]
  - MUSCULAR WEAKNESS [None]
  - HYPOAESTHESIA [None]
  - BURNING SENSATION [None]
